FAERS Safety Report 8368928-8 (Version None)
Quarter: 2012Q2

REPORT INFORMATION
  Report Type: 
  Country: None (occurrence: None)
  Receive Date: 20120518
  Receipt Date: 20120504
  Transmission Date: 20120825
  Serious: Yes (Life-Threatening, Hospitalization, Congenital Anomaly)
  Sender: FDA-Public Use
  Company Number: DE-RANBAXY-2012RR-56228

PATIENT
  Sex: Female
  Weight: 0.82 kg

DRUGS (5)
  1. SERTRALINE HYDROCHLORIDE [Suspect]
     Dosage: 150 MG/DAY
     Route: 064
     Dates: start: 20110331, end: 20110816
  2. FOLSAURE [Concomitant]
     Dosage: UNK
     Route: 064
     Dates: start: 20110331, end: 20110930
  3. BETAMETHASONE [Concomitant]
     Dosage: 12 MG/DAY
     Route: 064
     Dates: start: 20110930, end: 20110930
  4. SERTRALINE HYDROCHLORIDE [Suspect]
     Dosage: 100 MG/DAY
     Route: 064
     Dates: end: 20110930
  5. SERTRALINE HYDROCHLORIDE [Suspect]
     Dosage: 150 MG/DAY
     Route: 064
     Dates: start: 20110816, end: 20110930

REACTIONS (3)
  - PREMATURE BABY [None]
  - PATENT DUCTUS ARTERIOSUS [None]
  - VENTRICULAR SEPTAL DEFECT [None]
